FAERS Safety Report 11220264 (Version 1)
Quarter: 2015Q2

REPORT INFORMATION
  Report Type: Spontaneous
  Country: US (occurrence: None)
  Receive Date: 20150624
  Receipt Date: 20150624
  Transmission Date: 20150821
  Serious: No
  Sender: FDA-Public Use
  Company Number: None

PATIENT
  Age: 44 Year
  Sex: Female
  Weight: 144.7 kg

DRUGS (1)
  1. LEVOTHYROXINE 137MCG MYLAN [Suspect]
     Active Substance: LEVOTHYROXINE
     Indication: HYPOTHYROIDISM
     Route: 048
     Dates: start: 20150617, end: 20150623

REACTIONS (2)
  - Oedema [None]
  - Swelling face [None]

NARRATIVE: CASE EVENT DATE: 20150623
